FAERS Safety Report 7563488-3 (Version None)
Quarter: 2011Q2

REPORT INFORMATION
  Report Type: 
  Country: None (occurrence: None)
  Receive Date: 20110622
  Receipt Date: 20110609
  Transmission Date: 20111010
  Serious: Yes (Death, Other)
  Sender: FDA-Public Use
  Company Number: IT-CELGENEUS-083-21880-11061357

PATIENT

DRUGS (6)
  1. REVLIMID [Suspect]
     Dosage: 10 MILLIGRAM
     Route: 048
     Dates: start: 20080601, end: 20101101
  2. GRANULOCYTE COLONY STIMULATING FACTOR [Concomitant]
     Route: 065
  3. DOXORUBICIN HCL [Concomitant]
     Indication: MULTIPLE MYELOMA
     Dosage: 30MG/MQ
     Route: 051
     Dates: start: 20080601, end: 20101101
  4. HEPARIN [Concomitant]
     Indication: THROMBOSIS PROPHYLAXIS
     Route: 065
     Dates: start: 20080601, end: 20101101
  5. DEXAMETHASONE [Concomitant]
     Indication: MULTIPLE MYELOMA
     Dosage: 20 MILLIGRAM
     Route: 065
     Dates: start: 20080601, end: 20101101
  6. REVLIMID [Suspect]
     Indication: MULTIPLE MYELOMA
     Dosage: 25 MILLIGRAM
     Route: 048
     Dates: start: 20080601, end: 20101101

REACTIONS (7)
  - MULTIPLE MYELOMA [None]
  - ANAEMIA [None]
  - NEUROPATHY PERIPHERAL [None]
  - DEEP VEIN THROMBOSIS [None]
  - NEUTROPENIA [None]
  - THROMBOCYTOPENIA [None]
  - PYREXIA [None]
